FAERS Safety Report 8611760-8 (Version None)
Quarter: 2012Q3

REPORT INFORMATION
  Report Type: 
  Country: None (occurrence: None)
  Receive Date: 20120822
  Receipt Date: 20120814
  Transmission Date: 20120928
  Serious: Yes (Other)
  Sender: FDA-Public Use
  Company Number: US-ROCHE-1095846

PATIENT
  Age: 54 Year
  Sex: Female

DRUGS (1)
  1. ZELBORAF [Suspect]
     Indication: METASTATIC MALIGNANT MELANOMA
     Route: 048
     Dates: start: 20120201

REACTIONS (11)
  - BONE PAIN [None]
  - WEIGHT DECREASED [None]
  - SQUAMOUS CELL CARCINOMA OF SKIN [None]
  - SENSORY DISTURBANCE [None]
  - RASH [None]
  - FAECES PALE [None]
  - HEMIPARESIS [None]
  - MUSCULAR WEAKNESS [None]
  - SKIN ULCER [None]
  - FATIGUE [None]
  - ACNE [None]
